FAERS Safety Report 21726950 (Version 5)
Quarter: 2025Q2

REPORT INFORMATION
  Report Type: Spontaneous
  Country: US (occurrence: US)
  Receive Date: 20221214
  Receipt Date: 20250415
  Transmission Date: 20250717
  Serious: No
  Sender: SANOFI AVENTIS
  Company Number: US-SA-SAC20221209000211

PATIENT
  Age: 40 Year
  Sex: Male

DRUGS (4)
  1. DUPIXENT [Suspect]
     Active Substance: DUPILUMAB
     Indication: Dermatitis atopic
     Dosage: 300 MG, QOW
     Route: 058
     Dates: start: 20220817
  2. CLOBETASOL [Concomitant]
     Active Substance: CLOBETASOL
  3. FISH OIL [Concomitant]
     Active Substance: FISH OIL
  4. MUPIROCIN [Concomitant]
     Active Substance: MUPIROCIN

REACTIONS (5)
  - Sleep disorder due to a general medical condition [Unknown]
  - Rash [Unknown]
  - Discomfort [Unknown]
  - Drug ineffective [Unknown]
  - Intentional product misuse [Unknown]
